FAERS Safety Report 19279780 (Version 1)
Quarter: 2021Q2

REPORT INFORMATION
  Report Type: Spontaneous
  Country: US (occurrence: US)
  Receive Date: 20210520
  Receipt Date: 20210520
  Transmission Date: 20210717
  Serious: Yes (Other)
  Sender: FDA-Public Use
  Company Number: US-SA-2021SA166687

PATIENT
  Age: 44 Year
  Sex: Female

DRUGS (1)
  1. DUPIXENT [Suspect]
     Active Substance: DUPILUMAB
     Indication: PULMONARY EOSINOPHILIA
     Dosage: 200 MG, QOW
     Route: 058
     Dates: start: 20200916

REACTIONS (7)
  - Hypotension [Unknown]
  - Paraesthesia [Unknown]
  - Shoulder operation [Unknown]
  - Loss of consciousness [Unknown]
  - Product use in unapproved indication [Unknown]
  - Dizziness [Unknown]
  - Drug hypersensitivity [Unknown]

NARRATIVE: CASE EVENT DATE: 20200916
